FAERS Safety Report 5393094-0 (Version None)
Quarter: 2007Q3

REPORT INFORMATION
  Report Type: 
  Country: None (occurrence: None)
  Receive Date: 20070718
  Receipt Date: 20070702
  Transmission Date: 20080115
  Serious: Yes (Other)
  Sender: FDA-Public Use
  Company Number: 100#08#2007-02510

PATIENT
  Age: 64 Year
  Sex: Male

DRUGS (4)
  1. OXALIPLATIN (OXALIPLATIN) (OXALIPLATIN) [Suspect]
     Indication: GASTRIC CANCER RECURRENT
  2. OXALIPLATIN (OXALIPLATIN) (OXALIPLATIN) [Suspect]
     Indication: METASTASES TO LIVER
  3. FLUOROURACIL [Suspect]
     Indication: GASTRIC CANCER RECURRENT
  4. FLUOROURACIL [Suspect]
     Indication: METASTASES TO LIVER

REACTIONS (2)
  - CRYPTOGENIC ORGANISING PNEUMONIA [None]
  - PULMONARY FIBROSIS [None]
